FAERS Safety Report 7973179 (Version 4)
Quarter: 2013Q1

REPORT INFORMATION
  Report Type: Spontaneous
  Country: CA (occurrence: CA)
  Receive Date: 20110603
  Receipt Date: 20130326
  Transmission Date: 20140127
  Serious: Yes (Death, Other)
  Sender: FDA-Public Use
  Company Number: PHHY2011CA44527

PATIENT
  Sex: Female

DRUGS (3)
  1. SANDOSTATIN LAR [Suspect]
     Indication: NEUROENDOCRINE TUMOUR
     Dosage: 30 MG, EVERY 4 WEEKS
     Route: 030
     Dates: start: 20080619
  2. SANDOSTATIN LAR [Suspect]
     Dosage: 30 MG, EVERY 4 WEEKS
     Route: 030
     Dates: end: 20110101
  3. AFINITOR [Suspect]
     Indication: NEUROENDOCRINE TUMOUR
     Dosage: 10 MG, QD
     Route: 048
     Dates: start: 20101123, end: 201104

REACTIONS (16)
  - Death [Fatal]
  - Diabetes mellitus [Recovering/Resolving]
  - Blood glucose increased [Recovered/Resolved]
  - Anaemia [Unknown]
  - Fatigue [Recovering/Resolving]
  - Weight decreased [Recovering/Resolving]
  - Epistaxis [Recovering/Resolving]
  - Oropharyngeal pain [Unknown]
  - Odynophagia [Recovering/Resolving]
  - Dry mouth [Recovering/Resolving]
  - Dysgeusia [Recovering/Resolving]
  - Chills [Recovering/Resolving]
  - Nasal dryness [Recovering/Resolving]
  - Blood cholesterol increased [Recovering/Resolving]
  - Decreased appetite [Recovering/Resolving]
  - Nail disorder [Recovering/Resolving]
